FAERS Safety Report 12954845 (Version 2)
Quarter: 2016Q4

REPORT INFORMATION
  Report Type: Spontaneous
  Country: US (occurrence: US)
  Receive Date: 20161118
  Receipt Date: 20161121
  Transmission Date: 20170207
  Serious: Yes (Other)
  Sender: FDA-Public Use
  Company Number: PHHY2016US156195

PATIENT
  Age: 63 Year
  Sex: Female

DRUGS (5)
  1. ELBASVIR [Suspect]
     Active Substance: ELBASVIR
     Indication: ANTIVIRAL TREATMENT
     Route: 065
  2. RIBAVIRIN. [Suspect]
     Active Substance: RIBAVIRIN
     Indication: ANTIVIRAL TREATMENT
     Route: 065
  3. TACROLIMUS. [Suspect]
     Active Substance: TACROLIMUS
     Indication: IMMUNOSUPPRESSION
     Route: 065
  4. MYCOPHENOLATE [Suspect]
     Active Substance: MYCOPHENOLIC ACID
     Indication: IMMUNOSUPPRESSION
     Route: 065
  5. GRAZOPREVIR [Suspect]
     Active Substance: GRAZOPREVIR
     Indication: ANTIVIRAL TREATMENT
     Route: 065

REACTIONS (2)
  - Drug ineffective [Unknown]
  - Pancreas transplant rejection [Recovered/Resolved]
